FAERS Safety Report 8008027-8 (Version None)
Quarter: 2011Q4

REPORT INFORMATION
  Report Type: 
  Country: None (occurrence: None)
  Receive Date: 20111227
  Receipt Date: 20111111
  Transmission Date: 20120403
  Serious: No
  Sender: FDA-Public Use
  Company Number: US-BAYER-2011-109918

PATIENT
  Age: 48 Year
  Sex: Male

DRUGS (1)
  1. STAXYN [Suspect]
     Dosage: 5 MG, ONCE

REACTIONS (1)
  - FLUSHING [None]
